FAERS Safety Report 4960322-2 (Version None)
Quarter: 2006Q2

REPORT INFORMATION
  Report Type: 
  Country: None (occurrence: None)
  Receive Date: 20060403
  Receipt Date: 20060327
  Transmission Date: 20061013
  Serious: Yes (Hospitalization)
  Sender: FDA-Public Use
  Company Number: US-KINGPHARMUSA00001-K200600379

PATIENT
  Age: 96 Year
  Sex: Female

DRUGS (4)
  1. ALTACE [Suspect]
     Indication: SECONDARY HYPERTENSION
     Dosage: 10 MG, QD
     Route: 048
     Dates: end: 20060217
  2. LASILIX [Concomitant]
     Route: 048
  3. AMLOR [Concomitant]
     Route: 048
  4. MOPRAL [Concomitant]
     Dosage: UNK, UNK
     Route: 048

REACTIONS (4)
  - BRADYCARDIA [None]
  - HYPERKALAEMIA [None]
  - MALAISE [None]
  - RENAL FAILURE ACUTE [None]
